FAERS Safety Report 21177270 (Version 1)
Quarter: 2022Q3

REPORT INFORMATION
  Report Type: Spontaneous
  Country: US (occurrence: US)
  Receive Date: 20220805
  Receipt Date: 20220805
  Transmission Date: 20221027
  Serious: No
  Sender: FDA-Public Use
  Company Number: US-PFIZER INC-202201029956

PATIENT
  Age: 62 Year
  Sex: Female
  Weight: 60.78 kg

DRUGS (3)
  1. BRAFTOVI [Suspect]
     Active Substance: ENCORAFENIB
     Indication: Colon cancer metastatic
     Dosage: 75 MG, 4X/DAY (300MG PER DAY TAKEN ORALLY ALL AT SAME TIME, EACH 75MG 4 OF THEM )
     Route: 048
     Dates: start: 20220620, end: 20220623
  2. BRAFTOVI [Suspect]
     Active Substance: ENCORAFENIB
     Dosage: UNK
     Dates: start: 20220627, end: 20220715
  3. CETUXIMAB [Suspect]
     Active Substance: CETUXIMAB
     Indication: Colon cancer metastatic
     Dosage: UNK (HAD 2 INFUSIONS)
     Dates: start: 20220620

REACTIONS (5)
  - Rash [Unknown]
  - Hyperkeratosis [Unknown]
  - Pyrexia [Unknown]
  - Myalgia [Unknown]
  - Pain [Unknown]
